FAERS Safety Report 5712958-9 (Version None)
Quarter: 2008Q2

REPORT INFORMATION
  Report Type: 
  Country: None (occurrence: None)
  Receive Date: 20080422
  Receipt Date: 20080407
  Transmission Date: 20081010
  Serious: Yes (Death, Life-Threatening, Other)
  Sender: FDA-Public Use
  Company Number: FR-TYCO HEALTHCARE/MALLINCKRODT-T200800549

PATIENT

DRUGS (2)
  1. HEXABRIX [Suspect]
     Indication: ANGIOGRAM
     Dosage: 17.5 ML, SINGLE
     Route: 013
     Dates: start: 20080204, end: 20080204
  2. HEXABRIX [Suspect]
     Dosage: 17.5 ML, SINGLE
     Dates: start: 20080204, end: 20080204

REACTIONS (6)
  - ANAPHYLACTIC SHOCK [None]
  - ANURIA [None]
  - ATRIAL FIBRILLATION [None]
  - ATRIOVENTRICULAR BLOCK [None]
  - ISCHAEMIA [None]
  - MALAISE [None]
